FAERS Safety Report 4996011-8 (Version None)
Quarter: 2006Q2

REPORT INFORMATION
  Report Type: 
  Country: None (occurrence: None)
  Receive Date: 20060508
  Receipt Date: 20060428
  Transmission Date: 20061013
  Serious: Yes (Hospitalization)
  Sender: FDA-Public Use
  Company Number: US-MERCK-0605USA00047

PATIENT
  Age: 78 Year
  Sex: Male
  Weight: 89 kg

DRUGS (11)
  1. VIOXX [Suspect]
     Indication: ARTHRITIS
     Route: 048
  2. VIOXX [Suspect]
     Route: 048
  3. VIOXX [Suspect]
     Route: 048
  4. VIOXX [Suspect]
     Route: 048
  5. SINGULAIR [Concomitant]
     Route: 048
  6. TOPROL-XL [Concomitant]
     Route: 065
  7. ASPIRIN [Concomitant]
     Route: 048
  8. FUROSEMIDE [Concomitant]
     Route: 065
  9. FLOMAX [Concomitant]
     Route: 065
  10. PREVACID [Concomitant]
     Route: 065
  11. LIPITOR [Concomitant]
     Route: 065

REACTIONS (2)
  - MYOCARDIAL INFARCTION [None]
  - PRESCRIBED OVERDOSE [None]
